FAERS Safety Report 7403546-7 (Version None)
Quarter: 2011Q2

REPORT INFORMATION
  Report Type: 
  Country: None (occurrence: None)
  Receive Date: 20110408
  Receipt Date: 20110201
  Transmission Date: 20111010
  Serious: Yes (Life-Threatening, Hospitalization)
  Sender: FDA-Public Use
  Company Number: JP-MERCK-1102USA00638

PATIENT
  Age: 72 Year
  Sex: Female

DRUGS (7)
  1. MICARDIS [Concomitant]
     Route: 065
  2. ZYLORIC [Concomitant]
     Route: 065
  3. SUNRYTHM [Suspect]
     Route: 048
  4. THYRADIN-S [Concomitant]
     Route: 065
  5. PEPCID RPD [Suspect]
     Route: 048
  6. MAGLAX [Concomitant]
     Route: 065
  7. PREDNISOLONE [Concomitant]
     Route: 065

REACTIONS (4)
  - DEHYDRATION [None]
  - PYELONEPHRITIS ACUTE [None]
  - TOXICITY TO VARIOUS AGENTS [None]
  - RENAL FAILURE ACUTE [None]
